FAERS Safety Report 10249152 (Version 1)
Quarter: 2014Q2

REPORT INFORMATION
  Report Type: Spontaneous
  Country: US (occurrence: US)
  Receive Date: 20140620
  Receipt Date: 20140620
  Transmission Date: 20141212
  Serious: No
  Sender: FDA-Public Use
  Company Number: US-ASTRAZENECA-2014SE40580

PATIENT
  Sex: Female

DRUGS (2)
  1. NEXIUM [Suspect]
     Route: 048
  2. OVER THE COUNTER OR PRESCRIPTION ACID REFLUX MEDICINES/TWO DIFFERENT P [Concomitant]

REACTIONS (2)
  - Disease recurrence [Unknown]
  - Intentional product misuse [Unknown]
